FAERS Safety Report 15101611 (Version 1)
Quarter: 2018Q2

REPORT INFORMATION
  Report Type: Spontaneous
  Country: US (occurrence: US)
  Receive Date: 20180611
  Receipt Date: 20180611
  Transmission Date: 20180711
  Serious: No
  Sender: FDA-Public Use
  Company Number: None

PATIENT
  Age: 56 Year
  Sex: Female
  Weight: 59.85 kg

DRUGS (2)
  1. MIRTAZIPINE [Concomitant]
     Active Substance: MIRTAZAPINE
  2. CLONAZEPAM BY ACTAVIS [Suspect]
     Active Substance: CLONAZEPAM
     Indication: ANXIETY
     Route: 048

REACTIONS (5)
  - Product colour issue [None]
  - Product quality issue [None]
  - Nausea [None]
  - Malaise [None]
  - Drug effect decreased [None]

NARRATIVE: CASE EVENT DATE: 20180519
